FAERS Safety Report 5639687-4 (Version None)
Quarter: 2008Q1

REPORT INFORMATION
  Report Type: 
  Country: None (occurrence: None)
  Receive Date: 20080131
  Receipt Date: 20071030
  Transmission Date: 20080703
  Serious: Yes (Other)
  Sender: FDA-Public Use
  Company Number: 163-21880-07101789

PATIENT
  Age: 85 Year
  Sex: Female

DRUGS (6)
  1. REVLIMID [Suspect]
     Dosage: SEE IMAGE
     Route: 048
     Dates: start: 20070917
  2. REVLIMID [Suspect]
     Dosage: SEE IMAGE
     Route: 048
     Dates: start: 20071031
  3. FENTANYL [Concomitant]
  4. LORAZEPAM [Concomitant]
  5. TRAZODONE HCL [Concomitant]
  6. FLUOXETINE [Concomitant]

REACTIONS (1)
  - NEUTROPENIA [None]
